FAERS Safety Report 23466770 (Version 2)
Quarter: 2024Q1

REPORT INFORMATION
  Report Type: Spontaneous
  Country: SA (occurrence: SA)
  Receive Date: 20240201
  Receipt Date: 20240205
  Transmission Date: 20240409
  Serious: Yes (Death, Other)
  Sender: FDA-Public Use
  Company Number: SA-PFIZER INC-PV202400012488

PATIENT
  Age: 4 Year
  Sex: Male

DRUGS (1)
  1. VORICONAZOLE [Suspect]
     Active Substance: VORICONAZOLE
     Indication: Gastrointestinal fungal infection
     Dosage: UNK

REACTIONS (4)
  - Death [Fatal]
  - Intestinal ischaemia [Unknown]
  - Hypernatraemia [Unknown]
  - Off label use [Unknown]
